FAERS Safety Report 5935168-9 (Version None)
Quarter: 2008Q4

REPORT INFORMATION
  Report Type: 
  Country: None (occurrence: None)
  Receive Date: 20081028
  Receipt Date: 20081013
  Transmission Date: 20090506
  Serious: Yes (Other)
  Sender: FDA-Public Use
  Company Number: 2008US002825

PATIENT
  Age: 52 Year
  Sex: Male

DRUGS (3)
  1. PROGRAF [Suspect]
     Indication: HEART TRANSPLANT
  2. PREDNISOLONE ACETATE [Suspect]
     Indication: HEART TRANSPLANT
     Dosage: ORAL
     Route: 048
  3. MYCOPHENOLATE MOFETIL [Suspect]
     Indication: HEART TRANSPLANT

REACTIONS (3)
  - HEART TRANSPLANT REJECTION [None]
  - PERICARDIAL EFFUSION [None]
  - PERICARDITIS CONSTRICTIVE [None]
